FAERS Safety Report 22798088 (Version 5)
Quarter: 2025Q1

REPORT INFORMATION
  Report Type: Report from Study
  Country: US (occurrence: US)
  Receive Date: 20230808
  Receipt Date: 20250304
  Transmission Date: 20250408
  Serious: Yes (Other)
  Sender: TAKEDA
  Company Number: US-TAKEDA-2023TUS077202

PATIENT
  Age: 5 Year
  Sex: Male

DRUGS (3)
  1. ADVATE [Suspect]
     Active Substance: ANTIHEMOPHILIC FACTOR, HUMAN RECOMBINANT
     Indication: Product used for unknown indication
  2. ADVATE [Suspect]
     Active Substance: ANTIHEMOPHILIC FACTOR, HUMAN RECOMBINANT
  3. ADVATE [Suspect]
     Active Substance: ANTIHEMOPHILIC FACTOR, HUMAN RECOMBINANT

REACTIONS (11)
  - Haemarthrosis [Recovered/Resolved]
  - Epistaxis [Unknown]
  - Face injury [Recovered/Resolved]
  - Treatment noncompliance [Recovered/Resolved]
  - Feeling hot [Recovered/Resolved]
  - Arthropod bite [Recovered/Resolved]
  - Fall [Unknown]
  - Extra dose administered [Recovered/Resolved]
  - Limb injury [Unknown]
  - Swelling face [Unknown]
  - Injury [Unknown]

NARRATIVE: CASE EVENT DATE: 20210518
